FAERS Safety Report 4842718-2 (Version None)
Quarter: 2005Q4

REPORT INFORMATION
  Report Type: 
  Country: None (occurrence: None)
  Receive Date: 20051201
  Receipt Date: 20050907
  Transmission Date: 20060501
  Serious: Yes (Life-Threatening, Hospitalization)
  Sender: FDA-Public Use
  Company Number: 2005PK01619

PATIENT
  Age: 12835 Day
  Sex: Male
  Weight: 60 kg

DRUGS (1)
  1. DISOPRIVAN [Suspect]
     Indication: SEDATIVE THERAPY
     Route: 042
     Dates: start: 20050906

REACTIONS (2)
  - COMA [None]
  - CONVULSION [None]
